FAERS Safety Report 5305435-0 (Version None)
Quarter: 2007Q2

REPORT INFORMATION
  Report Type: 
  Country: None (occurrence: None)
  Receive Date: 20070424
  Receipt Date: 20070413
  Transmission Date: 20071010
  Serious: Yes (Death, Hospitalization)
  Sender: FDA-Public Use
  Company Number: US-JNJFOC-20060100226

PATIENT
  Sex: Female
  Weight: 57.15 kg

DRUGS (20)
  1. DURAGESIC-100 [Suspect]
     Route: 062
  2. DURAGESIC-100 [Suspect]
     Route: 062
  3. DURAGESIC-100 [Suspect]
     Route: 062
  4. DURAGESIC-100 [Suspect]
     Route: 062
  5. DURAGESIC-100 [Suspect]
     Indication: PAIN
     Route: 062
  6. CLONAZEPAM [Concomitant]
     Route: 048
  7. LONOX [Concomitant]
     Route: 048
  8. LORAZEPAM [Concomitant]
     Dosage: 1 MG TABLET/4 TO 6 HOURS AS NECESSARY, ORAL
     Route: 048
  9. LEVAQUIN [Concomitant]
     Route: 048
  10. TYLENOL [Concomitant]
     Dosage: 325 MG, 1-2 TABLETS EVERY 6 HOURS AS NEEDED, ORAL
     Route: 048
  11. SEROQUEL [Concomitant]
     Dosage: 100 MG, 2 TABLETS AT BEDTIME, ORAL
     Route: 048
  12. SENOKOT [Concomitant]
     Dosage: 17 G, 1 TABLET DAILY, ORAL
     Route: 048
  13. LASIX [Concomitant]
     Dosage: 40 MG DAILY, ORAL
     Route: 048
  14. EFFEXOR [Concomitant]
     Dosage: 75 MG DAILY, ORAL
     Route: 048
  15. PHENERGAN HCL [Concomitant]
     Indication: VOMITING
     Route: 048
  16. PHENERGAN HCL [Concomitant]
     Indication: NAUSEA
     Dosage: 25 MG EVERY 6 HOURS AS NEEDED, ORAL
     Route: 048
  17. NEURONTIN [Concomitant]
     Dosage: 300 MG TWICE DAILY, ORAL
     Route: 048
  18. K-DUR 10 [Concomitant]
     Dosage: 10 M/EQ EVERY MORNING, ORAL
     Route: 048
  19. CALCIUM CARBONATE [Concomitant]
     Dosage: 500 MG TWICE DAILY, ORAL
     Route: 048
  20. ACETAMINOPHEN AND HYDROCODONE BITARTRATE [Concomitant]
     Dosage: 7.5/500, 1 TABLET/6 HOURS, ORAL
     Route: 048

REACTIONS (9)
  - AGITATION [None]
  - DEVICE LEAKAGE [None]
  - DRUG WITHDRAWAL SYNDROME [None]
  - HALLUCINATION [None]
  - HYPERKALAEMIA [None]
  - ILEUS [None]
  - OVERDOSE [None]
  - THERAPEUTIC AGENT TOXICITY [None]
  - URINARY TRACT INFECTION [None]
